FAERS Safety Report 4642004-X (Version None)
Quarter: 2005Q2

REPORT INFORMATION
  Report Type: 
  Country: None (occurrence: None)
  Receive Date: 20050421
  Receipt Date: 20050406
  Transmission Date: 20051028
  Serious: Yes (Hospitalization)
  Sender: FDA-Public Use
  Company Number: US_010464125

PATIENT
  Age: 65 Year
  Sex: Female
  Weight: 48 kg

DRUGS (11)
  1. ILETIN [Suspect]
     Dates: start: 19470101
  2. HUMALOG [Suspect]
     Indication: DIABETES MELLITUS
  3. GLUCAGON [Suspect]
  4. HUMULIN-HUMAN INSULIN (RDNA) (HU [Suspect]
     Indication: DIABETES MELLITUS
  5. HUMULIN N [Suspect]
     Indication: DIABETES MELLITUS
     Dosage: 11 U DAY
  6. HUMULIN R [Suspect]
     Indication: DIABETES MELLITUS
     Dosage: 3 U/IN THE MORNING
  7. FORTEO [Suspect]
     Indication: HIP FRACTURE
     Dates: start: 20030301, end: 20030511
  8. ASPIRIN [Concomitant]
  9. FOSAMAX [Concomitant]
  10. MULTI-VITAMIN [Concomitant]
  11. PREMPRO [Concomitant]

REACTIONS (7)
  - BLOOD GLUCOSE DECREASED [None]
  - BLOOD GLUCOSE INCREASED [None]
  - CONDITION AGGRAVATED [None]
  - FALL [None]
  - FEELING ABNORMAL [None]
  - NEUROPATHY [None]
  - POOR QUALITY DRUG ADMINISTERED [None]
